FAERS Safety Report 4676592-4 (Version None)
Quarter: 2005Q2

REPORT INFORMATION
  Report Type: 
  Country: None (occurrence: None)
  Receive Date: 20050527
  Receipt Date: 20050427
  Transmission Date: 20051028
  Serious: Yes (Other)
  Sender: FDA-Public Use
  Company Number: BE-ROCHE-403132

PATIENT
  Age: 17 Year
  Sex: Female
  Weight: 65 kg

DRUGS (1)
  1. ROACCUTANE [Suspect]
     Indication: ACNE
     Route: 048
     Dates: start: 20041108, end: 20050425

REACTIONS (5)
  - APHTHOUS STOMATITIS [None]
  - DYSURIA [None]
  - ERYTHEMA INFECTIOSUM [None]
  - LYMPHADENOPATHY [None]
  - PETECHIAE [None]
